FAERS Safety Report 24377792 (Version 1)
Quarter: 2024Q3

REPORT INFORMATION
  Report Type: Report from Study
  Country: US (occurrence: US)
  Receive Date: 20240930
  Receipt Date: 20240930
  Transmission Date: 20241017
  Serious: Yes (Death, Hospitalization, Other)
  Sender: AMGEN
  Company Number: US-AMGEN-USANI2024189606

PATIENT
  Age: 61 Year
  Sex: Male

DRUGS (1)
  1. TARLATAMAB [Suspect]
     Active Substance: TARLATAMAB
     Indication: Neuroendocrine carcinoma
     Dosage: 1 MILLIGRAM, QD
     Route: 042
     Dates: start: 20240919, end: 20240919

REACTIONS (2)
  - Delirium [Not Recovered/Not Resolved]
  - Neuroendocrine carcinoma of prostate [Fatal]

NARRATIVE: CASE EVENT DATE: 20240502
